FAERS Safety Report 24728785 (Version 1)
Quarter: 2024Q4

REPORT INFORMATION
  Report Type: Spontaneous
  Country: CA (occurrence: CA)
  Receive Date: 20241212
  Receipt Date: 20241212
  Transmission Date: 20250115
  Serious: Yes (Other)
  Sender: CELLTRION
  Company Number: CA-CELLTRION INC.-2024CA031233

PATIENT

DRUGS (9)
  1. ADALIMUMAB [Suspect]
     Active Substance: ADALIMUMAB
     Indication: Ankylosing spondylitis
     Route: 065
  2. METHOTREXATE SODIUM [Suspect]
     Active Substance: METHOTREXATE SODIUM
     Indication: Ankylosing spondylitis
     Dosage: 25 MG, 1 EVERY 1 WEEKS
     Route: 048
  3. ABILIFY MAINTENA [Concomitant]
     Active Substance: ARIPIPRAZOLE
  4. ENBREL [Concomitant]
     Active Substance: ETANERCEPT
     Indication: Ankylosing spondylitis
     Dosage: 50 MG, 1 EVERY 1 WEEKS
     Route: 058
  5. FERROUS SULFATE [Concomitant]
     Active Substance: FERROUS SULFATE
  6. FLURBIPROFEN [Concomitant]
     Active Substance: FLURBIPROFEN
  7. FOLIC ACID [Concomitant]
     Active Substance: FOLIC ACID
  8. PREDNISONE [Concomitant]
     Active Substance: PREDNISONE
  9. PREVACID [Concomitant]
     Active Substance: LANSOPRAZOLE

REACTIONS (5)
  - Blood pressure diastolic increased [Unknown]
  - Gallbladder disorder [Unknown]
  - Chest pain [Unknown]
  - Condition aggravated [Unknown]
  - Off label use [Unknown]
